FAERS Safety Report 7606904-0 (Version None)
Quarter: 2011Q3

REPORT INFORMATION
  Report Type: 
  Country: None (occurrence: None)
  Receive Date: 20110713
  Receipt Date: 20110707
  Transmission Date: 20111222
  Serious: Yes (Death, Hospitalization)
  Sender: FDA-Public Use
  Company Number: FR-ROCHE-788767

PATIENT
  Sex: Female

DRUGS (4)
  1. ROCEPHIN [Suspect]
     Dosage: FREQUENCY: DAILY
     Route: 058
     Dates: start: 20110325, end: 20110404
  2. RISPERDAL [Concomitant]
     Route: 048
  3. VITAMIN D [Concomitant]
     Dosage: DRUG NAME REPORTED AS: CACIT VITAMINE D3
     Route: 048
  4. POTASSIUM CHLORIDE [Suspect]
     Dosage: DRUG NAME: POTASSIUM RICHARD (POTASSIUM CHLORURE, POTASSIUM GLYCEROPHOSPHATE, SOIT POTASSIUM)
     Route: 048

REACTIONS (2)
  - ORAL CANDIDIASIS [None]
  - CLOSTRIDIUM DIFFICILE COLITIS [None]
